FAERS Safety Report 7418809-9 (Version None)
Quarter: 2011Q2

REPORT INFORMATION
  Report Type: 
  Country: None (occurrence: None)
  Receive Date: 20110415
  Receipt Date: 20110401
  Transmission Date: 20111010
  Serious: Yes (Life-Threatening, Hospitalization)
  Sender: FDA-Public Use
  Company Number: US-CELGENEUS-163-21880-10121055

PATIENT
  Sex: Male
  Weight: 79.4 kg

DRUGS (11)
  1. AREDIA [Concomitant]
     Indication: MULTIPLE MYELOMA
     Route: 065
  2. TRAMADOL [Concomitant]
     Dosage: 50 MILLIGRAM
     Route: 048
     Dates: start: 20100409
  3. REVLIMID [Suspect]
     Indication: MULTIPLE MYELOMA
     Dosage: 15 MILLIGRAM
     Route: 048
     Dates: start: 20100322
  4. CALCIUM WITH VITAMIN D [Concomitant]
     Dosage: 600 MILLIGRAM
     Route: 048
     Dates: start: 20100409
  5. DARVOCET [Concomitant]
     Indication: PAIN
     Dosage: 100-650MG
     Route: 065
     Dates: start: 20100811
  6. CYMBALTA [Concomitant]
     Dosage: 90 MILLIGRAM
     Route: 048
     Dates: start: 20100409
  7. REVLIMID [Suspect]
     Dosage: 5 MILLIGRAM
     Route: 048
  8. RISPERDAL [Concomitant]
     Dosage: 2 MILLIGRAM
     Route: 048
     Dates: start: 20100409
  9. DEXAMETHASONE [Concomitant]
     Dosage: 8 MILLIGRAM
     Route: 065
  10. DEXAMETHASONE [Concomitant]
     Dosage: 4 MILLIGRAM
     Route: 048
     Dates: start: 20100406
  11. LAMICTAL [Concomitant]
     Dosage: 200 MILLIGRAM
     Route: 048
     Dates: start: 20100409

REACTIONS (2)
  - DEEP VEIN THROMBOSIS [None]
  - CELLULITIS [None]
